FAERS Safety Report 5262120-1 (Version None)
Quarter: 2007Q1

REPORT INFORMATION
  Report Type: 
  Country: None (occurrence: None)
  Receive Date: 20070311
  Receipt Date: 20070228
  Transmission Date: 20070707
  Serious: Yes (Other)
  Sender: FDA-Public Use
  Company Number: 2006UW11237

PATIENT
  Sex: Female
  Weight: 106.4 kg

DRUGS (4)
  1. SEROQUEL [Suspect]
     Route: 048
  2. ZYPREXA [Suspect]
  3. ABILIFY [Concomitant]
  4. CLOZARIL [Concomitant]

REACTIONS (3)
  - ACETONAEMIA [None]
  - DIABETES MELLITUS [None]
  - PANCREATITIS [None]
